FAERS Safety Report 5785496-5 (Version None)
Quarter: 2008Q2

REPORT INFORMATION
  Report Type: 
  Country: None (occurrence: None)
  Receive Date: 20080605
  Receipt Date: 20080219
  Transmission Date: 20081010
  Serious: No
  Sender: FDA-Public Use
  Company Number: A0710471A

PATIENT
  Age: 60 Year
  Sex: Female

DRUGS (7)
  1. ALLI [Suspect]
     Dates: start: 20080208
  2. WATER PILL [Concomitant]
  3. VITAMIN A [Concomitant]
  4. VITAMIN D [Concomitant]
  5. FISH OIL [Concomitant]
  6. ALLERGY MEDICINE [Concomitant]
  7. MULTI-VITAMIN [Concomitant]

REACTIONS (3)
  - DYSPEPSIA [None]
  - STEATORRHOEA [None]
  - STOMACH DISCOMFORT [None]
